FAERS Safety Report 21635831 (Version 1)
Quarter: 2022Q4

REPORT INFORMATION
  Report Type: Spontaneous
  Country: JP (occurrence: JP)
  Receive Date: 20221123
  Receipt Date: 20221123
  Transmission Date: 20230113
  Serious: Yes (Other)
  Sender: FDA-Public Use
  Company Number: JP-NEUROCRINE BIOSCIENCES INC.-2022NBI06783

PATIENT

DRUGS (5)
  1. VALBENAZINE [Suspect]
     Active Substance: VALBENAZINE
     Indication: Tardive dyskinesia
     Dosage: UNK, UNK, QD
     Route: 048
     Dates: start: 20220818, end: 20220905
  2. PERPHENAZINE HYDROCHLORIDE [Suspect]
     Active Substance: PERPHENAZINE HYDROCHLORIDE
     Indication: Product used for unknown indication
     Dosage: UNK,UNK, TID
     Route: 048
  3. TEGRETOL [Concomitant]
     Active Substance: CARBAMAZEPINE
     Dosage: UNKNOWN
     Route: 065
  4. AKINETON [Concomitant]
     Active Substance: BIPERIDEN HYDROCHLORIDE
     Dosage: UNKNOWN
     Route: 065
  5. FYCOMPA [Concomitant]
     Active Substance: PERAMPANEL
     Dosage: UNKNOWN
     Route: 065

REACTIONS (2)
  - Tardive dyskinesia [Unknown]
  - Rash [Recovered/Resolved]

NARRATIVE: CASE EVENT DATE: 20220905
